FAERS Safety Report 7300901-0 (Version None)
Quarter: 2010Q4

REPORT INFORMATION
  Report Type: 
  Country: None (occurrence: None)
  Receive Date: 20101230
  Receipt Date: 20091117
  Transmission Date: 20110411
  Serious: Yes (Other)
  Sender: FDA-Public Use
  Company Number: 20090541

PATIENT
  Sex: Female

DRUGS (1)
  1. VENOFER [Suspect]
     Indication: PRODUCT USED FOR UNKNOWN INDICATION
     Dosage: 400 MG IN 250 CC NS OVER 3 HRS INTRAVENOUS DRIP
     Route: 041
     Dates: start: 20091106, end: 20091106

REACTIONS (1)
  - ANAPHYLACTOID REACTION [None]
